FAERS Safety Report 6355961-0 (Version None)
Quarter: 2009Q3

REPORT INFORMATION
  Report Type: 
  Country: None (occurrence: None)
  Receive Date: 20090914
  Receipt Date: 20090914
  Transmission Date: 20100115
  Serious: No
  Sender: FDA-Public Use
  Company Number: None

PATIENT
  Age: 31 Year
  Sex: Female
  Weight: 56.6996 kg

DRUGS (1)
  1. AMPHETAMINE SULFATE TAB [Suspect]
     Indication: NARCOLEPSY
     Dosage: 20MG BID PO
     Route: 048
     Dates: start: 20090615, end: 20090822

REACTIONS (10)
  - AGITATION [None]
  - ANXIETY [None]
  - DIARRHOEA [None]
  - DIZZINESS [None]
  - FEELING ABNORMAL [None]
  - HEADACHE [None]
  - MALAISE [None]
  - MOOD ALTERED [None]
  - NAUSEA [None]
  - PRODUCT QUALITY ISSUE [None]
